FAERS Safety Report 13349350 (Version 1)
Quarter: 2017Q1

REPORT INFORMATION
  Report Type: Spontaneous
  Country: GB (occurrence: GB)
  Receive Date: 20170320
  Receipt Date: 20170320
  Transmission Date: 20170428
  Serious: Yes (Other)
  Sender: FDA-Public Use
  Company Number: GB-DRREDDYS-GER/UKI/17/0087881

PATIENT
  Age: 46 Year
  Sex: Female
  Weight: 91 kg

DRUGS (5)
  1. FLUOXETINE [Suspect]
     Active Substance: FLUOXETINE HYDROCHLORIDE
     Indication: DEPRESSION
     Route: 048
     Dates: start: 20140522, end: 20161114
  2. INDAPAMIDE HEMIHYDRATE [Concomitant]
     Active Substance: INDAPAMIDE HEMIHYDRATE
     Indication: HYPERTENSION
     Route: 048
     Dates: start: 20170221
  3. PERINDOPRIL ERBUMINE. [Concomitant]
     Active Substance: PERINDOPRIL ERBUMINE
     Indication: HYPERTENSION
     Route: 048
     Dates: start: 20150804
  4. TAMOXIFEN [Interacting]
     Active Substance: TAMOXIFEN
     Indication: BREAST CANCER
     Route: 048
     Dates: start: 20081208
  5. AMLODIPINE [Concomitant]
     Active Substance: AMLODIPINE BESYLATE
     Indication: HYPERTENSION
     Route: 048
     Dates: start: 20151022

REACTIONS (1)
  - Drug interaction [Unknown]
